FAERS Safety Report 8107441-X (Version None)
Quarter: 2012Q1

REPORT INFORMATION
  Report Type: 
  Country: None (occurrence: None)
  Receive Date: 20120202
  Receipt Date: 20120125
  Transmission Date: 20120608
  Serious: No
  Sender: FDA-Public Use
  Company Number: US-B.I. PHARMACEUTICALS,INC./RIDGEFIELD-2011-BP-21466BP

PATIENT
  Sex: Male

DRUGS (10)
  1. SPIRIVA [Suspect]
     Indication: CHRONIC OBSTRUCTIVE PULMONARY DISEASE
  2. PROAIR HFA [Concomitant]
     Indication: ASTHMA
     Dates: start: 20110801
  3. SPIRIVA [Suspect]
     Indication: ASTHMA
     Dosage: 18 MCG
     Route: 055
     Dates: start: 20110801
  4. PROAIR HFA [Concomitant]
     Indication: BRONCHITIS
     Dates: start: 20100101
  5. LANTUS [Concomitant]
     Indication: TYPE 1 DIABETES MELLITUS
     Route: 058
  6. PREDNISONE TAB [Concomitant]
     Indication: ALVEOLITIS ALLERGIC
     Dosage: 60 MG
     Route: 048
     Dates: start: 20111101
  7. QVAR 40 [Concomitant]
     Indication: CHRONIC OBSTRUCTIVE PULMONARY DISEASE
     Dates: start: 20111101
  8. HUMALOG [Concomitant]
     Indication: TYPE 1 DIABETES MELLITUS
     Route: 058
  9. SYMBICORT [Concomitant]
     Indication: ASTHMA
     Dates: start: 20110801
  10. NEXIUM [Concomitant]
     Indication: PROPHYLAXIS
     Dates: start: 20111101

REACTIONS (4)
  - DRY MOUTH [None]
  - DYSPNOEA [None]
  - WHEEZING [None]
  - DIZZINESS [None]
